FAERS Safety Report 14734542 (Version 1)
Quarter: 2018Q2

REPORT INFORMATION
  Report Type: Spontaneous
  Country: US (occurrence: US)
  Receive Date: 20180403
  Receipt Date: 20180403
  Transmission Date: 20180711
  Serious: Yes (Other)
  Sender: FDA-Public Use
  Company Number: None

PATIENT
  Age: 67 Year
  Sex: Female
  Weight: 60.78 kg

DRUGS (14)
  1. GABAPENTIN. [Concomitant]
     Active Substance: GABAPENTIN
  2. ESTRADIOL. [Concomitant]
     Active Substance: ESTRADIOL
  3. SEROQUEL [Concomitant]
     Active Substance: QUETIAPINE FUMARATE
  4. COQ10 [Concomitant]
     Active Substance: UBIDECARENONE
  5. OMEPRAZOLE. [Concomitant]
     Active Substance: OMEPRAZOLE
  6. HYDROCODONE/ACETAMINOPHEN 10-325 [Suspect]
     Active Substance: ACETAMINOPHEN\HYDROCODONE
     Indication: BACK PAIN
     Dosage: ?          QUANTITY:1 DF DOSAGE FORM;?
     Route: 048
     Dates: start: 200104
  7. BACLOFEN. [Concomitant]
     Active Substance: BACLOFEN
  8. SIMVASTATIN. [Suspect]
     Active Substance: SIMVASTATIN
  9. VITAMIN D [Concomitant]
     Active Substance: CHOLECALCIFEROL
  10. CALCIUM W/D [Concomitant]
  11. GLUCOSAMINE W/CHONDROITIN [Concomitant]
     Active Substance: CHONDROITIN SULFATE A\GLUCOSAMINE
  12. LIDOCAINE PATCH [Concomitant]
     Active Substance: LIDOCAINE
  13. AMITRIPTYLINE [Concomitant]
     Active Substance: AMITRIPTYLINE
  14. BIOTIN [Concomitant]
     Active Substance: BIOTIN

REACTIONS (2)
  - Drug ineffective [None]
  - Road traffic accident [None]
